FAERS Safety Report 4563385-1 (Version None)
Quarter: 2005Q1

REPORT INFORMATION
  Report Type: 
  Country: None (occurrence: None)
  Receive Date: 20050128
  Receipt Date: 20040323
  Transmission Date: 20050727
  Serious: No
  Sender: FDA-Public Use
  Company Number: US-GLAXOSMITHKLINE-A0504097A

PATIENT
  Age: 28 Year
  Sex: Female

DRUGS (3)
  1. WELLBUTRIN [Suspect]
     Route: 048
     Dates: end: 20040320
  2. DIURETIC [Concomitant]
  3. HORMONE REPLACEMENT [Concomitant]

REACTIONS (1)
  - MUSCLE TWITCHING [None]
